FAERS Safety Report 24957177 (Version 2)
Quarter: 2025Q1

REPORT INFORMATION
  Report Type: Spontaneous
  Country: JP (occurrence: JP)
  Receive Date: 20250211
  Receipt Date: 20250217
  Transmission Date: 20250409
  Serious: Yes (Hospitalization)
  Sender: NOVARTIS
  Company Number: JP-002147023-NVSJ2025JP001950

PATIENT
  Age: 62 Year
  Sex: Female

DRUGS (4)
  1. LUTATHERA [Suspect]
     Active Substance: LUTETIUM OXODOTREOTIDE LU-177
     Indication: Neuroendocrine tumour
     Route: 041
     Dates: start: 20241010
  2. LUTATHERA [Suspect]
     Active Substance: LUTETIUM OXODOTREOTIDE LU-177
     Route: 041
     Dates: start: 20241212, end: 20241212
  3. ARGININE\LYSINE [Concomitant]
     Active Substance: ARGININE\LYSINE
     Indication: Nephroprotective therapy
     Route: 041
     Dates: start: 20241010, end: 20241010
  4. ARGININE\LYSINE [Concomitant]
     Active Substance: ARGININE\LYSINE
     Route: 041
     Dates: start: 20241212, end: 20241212

REACTIONS (3)
  - Pneumonia bacterial [Recovered/Resolved]
  - Pyrexia [Recovering/Resolving]
  - Nasopharyngitis [Unknown]

NARRATIVE: CASE EVENT DATE: 20250204
